FAERS Safety Report 5982215-4 (Version None)
Quarter: 2008Q4

REPORT INFORMATION
  Report Type: 
  Country: None (occurrence: None)
  Receive Date: 20081208
  Receipt Date: 20081126
  Transmission Date: 20090506
  Serious: Yes (Hospitalization, Other)
  Sender: FDA-Public Use
  Company Number: JP-JNJFOC-20081200287

PATIENT
  Age: 65 Year
  Sex: Male

DRUGS (4)
  1. REMICADE [Suspect]
     Dosage: 1 INFUSION ON AN UNKNOWN DATE
     Route: 042
  2. REMICADE [Suspect]
     Indication: RHEUMATOID ARTHRITIS
     Route: 042
  3. METHOTREXATE [Concomitant]
     Indication: RHEUMATOID ARTHRITIS
     Route: 048
  4. PREDNISOLONE [Concomitant]
     Route: 048

REACTIONS (1)
  - PNEUMONIA CRYPTOCOCCAL [None]
